FAERS Safety Report 4745664-8 (Version None)
Quarter: 2005Q3

REPORT INFORMATION
  Report Type: 
  Country: None (occurrence: None)
  Receive Date: 20050811
  Receipt Date: 20050729
  Transmission Date: 20060218
  Serious: Yes (Other)
  Sender: FDA-Public Use
  Company Number: 2005110232

PATIENT
  Age: 28 Year
  Sex: Female

DRUGS (4)
  1. LIPITOR [Suspect]
     Indication: TYPE IIA HYPERLIPIDAEMIA
     Dosage: 10 MG (10 MG, 1 IN 1 D), ORAL
     Route: 048
     Dates: start: 20040401
  2. BETALOC (METOPROLOL TARTRATE) [Concomitant]
  3. ACETYLSALICYLIC ACID SRT [Concomitant]
  4. PLAVIX (CLOPIIDOGREL SULFATE) [Concomitant]

REACTIONS (3)
  - BLOOD THYROID STIMULATING HORMONE INCREASED [None]
  - CORONARY ARTERY ATHEROSCLEROSIS [None]
  - WEIGHT DECREASED [None]
